FAERS Safety Report 20418209 (Version 1)
Quarter: 2022Q1

REPORT INFORMATION
  Report Type: Spontaneous
  Country: CN (occurrence: CN)
  Receive Date: 20220202
  Receipt Date: 20220202
  Transmission Date: 20220423
  Serious: Yes (Other)
  Sender: FDA-Public Use
  Company Number: CN-ZAILAB-ZAI202200055

PATIENT
  Age: 65 Year
  Sex: Female
  Weight: 50 kg

DRUGS (1)
  1. QINLOCK [Suspect]
     Active Substance: RIPRETINIB
     Indication: Gastrointestinal stromal tumour
     Dosage: 150 MILLIGRAM, QD (DAILY)
     Route: 065
     Dates: start: 20211116

REACTIONS (7)
  - Pharyngeal haemorrhage [Unknown]
  - Epistaxis [Unknown]
  - Blood pressure fluctuation [Unknown]
  - Muscle fatigue [Unknown]
  - Gingival bleeding [Unknown]
  - Muscle spasms [Unknown]
  - Alopecia [Unknown]
